FAERS Safety Report 10721277 (Version 1)
Quarter: 2015Q1

REPORT INFORMATION
  Report Type: Report from Study
  Country: US (occurrence: US)
  Receive Date: 20150119
  Receipt Date: 20150119
  Transmission Date: 20150721
  Serious: Yes (Death, Hospitalization, Other)
  Sender: FDA-Public Use
  Company Number: US-ALEXION PHARMACEUTICALS INC.-A201500100

PATIENT

DRUGS (1)
  1. SOLIRIS [Suspect]
     Active Substance: ECULIZUMAB
     Indication: PRODUCT USED FOR UNKNOWN INDICATION
     Dosage: UNK
     Route: 042
     Dates: end: 20141226

REACTIONS (6)
  - Graft versus host disease [Fatal]
  - Abdominal pain [Unknown]
  - Gastrointestinal haemorrhage [Unknown]
  - Condition aggravated [Unknown]
  - Stem cell transplant [Fatal]
  - Fluid overload [Fatal]
